FAERS Safety Report 6710654-2 (Version None)
Quarter: 2010Q2

REPORT INFORMATION
  Report Type: 
  Country: None (occurrence: None)
  Receive Date: 20100504
  Receipt Date: 20100504
  Transmission Date: 20101027
  Serious: Yes (Hospitalization)
  Sender: FDA-Public Use
  Company Number: None

PATIENT
  Age: 26 Year
  Sex: Female

DRUGS (1)
  1. BUPIVICAINE [Suspect]
     Indication: POSTOPERATIVE ANALGESIA
     Dosage: FOR TAP NERVE BLOCK  TWO TIMES
     Dates: start: 20090120, end: 20100121

REACTIONS (5)
  - AGITATION [None]
  - CONVULSION [None]
  - RESTLESSNESS [None]
  - THERAPEUTIC AGENT TOXICITY [None]
  - UNRESPONSIVE TO STIMULI [None]
